FAERS Safety Report 23919694 (Version 4)
Quarter: 2024Q3

REPORT INFORMATION
  Report Type: Spontaneous
  Country: US (occurrence: US)
  Receive Date: 20240530
  Receipt Date: 20240808
  Transmission Date: 20241016
  Serious: Yes (Hospitalization, Other)
  Sender: JOHNSON AND JOHNSON
  Company Number: US-JNJFOC-20240563116

PATIENT
  Age: 64 Year
  Sex: Female
  Weight: 63.106 kg

DRUGS (19)
  1. AMIVANTAMAB [Suspect]
     Active Substance: AMIVANTAMAB
     Indication: Non-small cell lung cancer metastatic
     Route: 042
     Dates: start: 20240422, end: 20240429
  2. AMIVANTAMAB [Suspect]
     Active Substance: AMIVANTAMAB
     Indication: Lung adenocarcinoma
     Dosage: RESUMED THERAPY ON 5/22/2024
     Route: 042
     Dates: start: 20240422, end: 20240508
  3. CARBOPLATIN [Concomitant]
     Active Substance: CARBOPLATIN
     Dates: start: 20240422
  4. SYNTHROID [Concomitant]
     Active Substance: LEVOTHYROXINE SODIUM
     Indication: Hypothyroidism
     Route: 048
  5. DEPAKOTE [Concomitant]
     Active Substance: DIVALPROEX SODIUM
     Indication: Seizure
     Route: 048
  6. DULOXETINE [Concomitant]
     Active Substance: DULOXETINE
     Indication: Pain
     Route: 048
  7. GABAPENTIN [Concomitant]
     Active Substance: GABAPENTIN
     Indication: Pain
     Route: 048
  8. GABAPENTIN [Concomitant]
     Active Substance: GABAPENTIN
     Route: 048
  9. OXYCODONE [Concomitant]
     Active Substance: OXYCODONE
     Indication: Pain
     Route: 048
  10. OXYCODONE [Concomitant]
     Active Substance: OXYCODONE
     Route: 048
  11. MOMETASONE FUROATE [Concomitant]
     Active Substance: MOMETASONE FUROATE
     Indication: Rhinitis allergic
     Route: 048
  12. VISTARIL (HYDROXYZINE HYDROCHLORIDE) [Concomitant]
     Active Substance: HYDROXYZINE HYDROCHLORIDE
     Indication: Pruritus
     Route: 048
  13. ALBUTEROL [Concomitant]
     Active Substance: ALBUTEROL
     Indication: Dyspnoea
     Dosage: Q6HR PRN WHEEZING,1 PUFF DAILY
  14. ALIMTA [Concomitant]
     Active Substance: PEMETREXED DISODIUM
     Indication: Lung neoplasm malignant
     Route: 042
     Dates: start: 20240422
  15. CARBOPLATIN [Concomitant]
     Active Substance: CARBOPLATIN
     Indication: Lung neoplasm malignant
     Route: 042
     Dates: start: 20240422
  16. BUPROPION [Concomitant]
     Active Substance: BUPROPION
     Indication: Major depression
     Route: 048
  17. BUPROPION [Concomitant]
     Active Substance: BUPROPION
     Route: 048
  18. CYMBALTA [Concomitant]
     Active Substance: DULOXETINE HYDROCHLORIDE
     Indication: Pain
     Route: 048
  19. CYMBALTA [Concomitant]
     Active Substance: DULOXETINE HYDROCHLORIDE
     Route: 048

REACTIONS (4)
  - Hypokalaemia [Recovered/Resolved]
  - Metastases to lung [Unknown]
  - Neutropenia [Unknown]
  - Dehydration [Unknown]

NARRATIVE: CASE EVENT DATE: 20240501
